FAERS Safety Report 18269642 (Version 1)
Quarter: 2020Q3

REPORT INFORMATION
  Report Type: Spontaneous
  Country: RO (occurrence: RO)
  Receive Date: 20200915
  Receipt Date: 20200915
  Transmission Date: 20201103
  Serious: Yes (Other)
  Sender: FDA-Public Use
  Company Number: RO-CMP PHARMA-2020CMP00022

PATIENT
  Age: 42 Year
  Sex: Male

DRUGS (1)
  1. TRIAMCINOLONE [Suspect]
     Active Substance: TRIAMCINOLONE
     Indication: UVEITIS
     Dosage: 4 MG, ONCE

REACTIONS (2)
  - Off label use [Recovered/Resolved]
  - Non-infectious endophthalmitis [Recovered/Resolved]
